FAERS Safety Report 7669106-8 (Version None)
Quarter: 2011Q3

REPORT INFORMATION
  Report Type: 
  Country: None (occurrence: None)
  Receive Date: 20110808
  Receipt Date: 20110728
  Transmission Date: 20111222
  Serious: Yes (Hospitalization)
  Sender: FDA-Public Use
  Company Number: JP-JNJFOC-20110306715

PATIENT
  Age: 42 Year
  Sex: Male
  Weight: 84 kg

DRUGS (14)
  1. ACETAMINOPHEN [Concomitant]
     Indication: PROPHYLAXIS
     Route: 048
     Dates: start: 20100823
  2. JANUVIA [Concomitant]
     Indication: DIABETES MELLITUS
     Route: 048
     Dates: start: 20110114
  3. KINDAVATE [Concomitant]
     Indication: PSORIATIC ARTHROPATHY
     Route: 003
  4. LOCOIDON [Concomitant]
     Indication: PSORIATIC ARTHROPATHY
     Route: 003
  5. NATEGLINIDE [Concomitant]
     Indication: DIABETES MELLITUS
     Route: 048
     Dates: start: 20100824, end: 20110103
  6. PYDOXAL [Concomitant]
     Indication: PROPHYLAXIS
     Route: 048
     Dates: start: 20100906
  7. ANTEBATE [Concomitant]
     Indication: PSORIATIC ARTHROPATHY
     Route: 003
  8. REMICADE [Suspect]
     Dosage: TOTAL 5 INFUSIONS
     Route: 042
     Dates: start: 20110117
  9. ISONIAZID [Concomitant]
     Indication: ANTIBIOTIC PROPHYLAXIS
     Route: 048
     Dates: start: 20100712
  10. REMICADE [Suspect]
     Indication: PSORIATIC ARTHROPATHY
     Route: 042
     Dates: start: 20100809
  11. REMICADE [Suspect]
     Dosage: TOTAL 4 DOSES
     Route: 042
     Dates: start: 20101115
  12. ALLEGRA [Concomitant]
     Indication: PROPHYLAXIS
     Route: 048
     Dates: start: 20100823
  13. GLYCORAN [Concomitant]
     Indication: DIABETES MELLITUS
     Route: 048
     Dates: start: 20100810
  14. AMARYL [Concomitant]
     Indication: DIABETES MELLITUS
     Route: 048
     Dates: start: 20110201

REACTIONS (2)
  - PNEUMONIA [None]
  - PRODUCTIVE COUGH [None]
